FAERS Safety Report 25106776 (Version 1)
Quarter: 2025Q1

REPORT INFORMATION
  Report Type: Spontaneous
  Country: CN (occurrence: CN)
  Receive Date: 20250321
  Receipt Date: 20250321
  Transmission Date: 20250409
  Serious: Yes (Hospitalization, Other)
  Sender: BAXTER
  Company Number: None

PATIENT
  Age: 78 Year
  Sex: Female
  Weight: 39 kg

DRUGS (10)
  1. CYCLOPHOSPHAMIDE [Suspect]
     Active Substance: CYCLOPHOSPHAMIDE
     Indication: Diffuse large B-cell lymphoma
     Dosage: 0.48 G, QD
     Route: 041
     Dates: start: 20250221, end: 20250221
  2. SODIUM CHLORIDE [Suspect]
     Active Substance: SODIUM CHLORIDE
     Route: 041
     Dates: start: 20250220, end: 20250220
  3. SODIUM CHLORIDE [Suspect]
     Active Substance: SODIUM CHLORIDE
     Route: 041
     Dates: start: 20250220, end: 20250220
  4. RITUXIMAB [Suspect]
     Active Substance: RITUXIMAB
     Indication: Diffuse large B-cell lymphoma
     Dosage: 150 MG, QD
     Route: 041
     Dates: start: 20250220, end: 20250220
  5. RITUXIMAB [Suspect]
     Active Substance: RITUXIMAB
     Dosage: 300 MG, QD
     Route: 041
     Dates: start: 20250220, end: 20250220
  6. EPIRUBICIN HYDROCHLORIDE [Suspect]
     Active Substance: EPIRUBICIN HYDROCHLORIDE
     Indication: Diffuse large B-cell lymphoma
     Dosage: 45 MG, QD
     Route: 041
     Dates: start: 20250221, end: 20250221
  7. VINCRISTINE SULFATE [Suspect]
     Active Substance: VINCRISTINE SULFATE
     Indication: Diffuse large B-cell lymphoma
     Dosage: 1 MG, QD
     Route: 041
     Dates: start: 20250221, end: 20250221
  8. SODIUM CHLORIDE [Suspect]
     Active Substance: SODIUM CHLORIDE
     Indication: Medication dilution
     Dosage: 250 ML, QD IVGTT ONCE + EPIRUBICIN HYDROCHLORIDE FOR INJECTION 45MG
     Route: 041
     Dates: start: 20250221, end: 20250221
  9. SODIUM CHLORIDE [Suspect]
     Active Substance: SODIUM CHLORIDE
     Indication: Medication dilution
     Dosage: 100 ML, QD, (0.9%) IVGTT ONCE + VINCRISTINE SULFATE INJECTION 1MG
     Route: 041
     Dates: start: 20250221, end: 20250221
  10. SODIUM CHLORIDE [Suspect]
     Active Substance: SODIUM CHLORIDE
     Dosage: 100 ML, QD, (0.9%) IVGTT ONCE + CYCLOPHOSPHAMIDE FOR INJECTION 0.48G
     Route: 041
     Dates: start: 20250221, end: 20250221

REACTIONS (2)
  - Abdominal pain [Unknown]
  - Myelosuppression [Recovering/Resolving]

NARRATIVE: CASE EVENT DATE: 20250304
